FAERS Safety Report 18545519 (Version 1)
Quarter: 2020Q4

REPORT INFORMATION
  Report Type: Spontaneous
  Country: FR (occurrence: FR)
  Receive Date: 20201125
  Receipt Date: 20201125
  Transmission Date: 20210114
  Serious: Yes (Hospitalization)
  Sender: FDA-Public Use
  Company Number: NVSC2020FR308572

PATIENT
  Age: 72 Year
  Sex: Female

DRUGS (4)
  1. RIFATER [Suspect]
     Active Substance: ISONIAZID\PYRAZINAMIDE\RIFAMPIN
     Indication: ENCEPHALITIS
     Dosage: 5 DF (TOTAL)
     Route: 048
     Dates: start: 20201007
  2. DEXAMBUTOL [Suspect]
     Active Substance: ETHAMBUTOL HYDROCHLORIDE
     Indication: ENCEPHALITIS
     Dosage: 2 DF,QD
     Route: 048
     Dates: start: 20201007
  3. AMBISOME [Suspect]
     Active Substance: AMPHOTERICIN B
     Indication: ENCEPHALITIS
     Dosage: 200 MG,QD
     Route: 042
     Dates: start: 20201007
  4. DOXYCYCLINE SANDOZ [Suspect]
     Active Substance: DOXYCYCLINE
     Indication: ENCEPHALITIS
     Dosage: 200 MG, QD
     Route: 048
     Dates: start: 20201007

REACTIONS (1)
  - Pancytopenia [Not Recovered/Not Resolved]

NARRATIVE: CASE EVENT DATE: 20201016
